FAERS Safety Report 9131464 (Version 2)
Quarter: 2013Q2

REPORT INFORMATION
  Report Type: Spontaneous
  Country: US (occurrence: US)
  Receive Date: 20130301
  Receipt Date: 20130417
  Transmission Date: 20140414
  Serious: No
  Sender: FDA-Public Use
  Company Number: US-PFIZER INC-2013072128

PATIENT
  Age: 77 Year
  Sex: Female
  Weight: 59 kg

DRUGS (7)
  1. LYRICA [Suspect]
     Indication: PAIN IN EXTREMITY
     Dosage: 75 MG, 3X/DAY
     Route: 048
     Dates: start: 2012
  2. LYRICA [Suspect]
     Dosage: UNK
  3. LYRICA [Suspect]
     Dosage: UNK
  4. HYDROCHLOROTHIAZIDE [Concomitant]
     Indication: HYPERTENSION
     Dosage: UNKNOWN DOSE DAILY
  5. KLOR-CON [Concomitant]
     Indication: DIURETIC THERAPY
     Dosage: UNKNOWN DOSE DAILY
  6. SIMVASTATIN [Concomitant]
     Indication: BLOOD CHOLESTEROL ABNORMAL
     Dosage: UNKNOWN DOSE DAILY
  7. THYROXINE [Concomitant]
     Indication: THYROID DISORDER
     Dosage: UNKNOWN DOSE DAILY

REACTIONS (1)
  - Drug effect incomplete [Unknown]
